FAERS Safety Report 8713659 (Version 2)
Quarter: 2012Q4

REPORT INFORMATION
  Report Type: 
  Country: US (occurrence: US)
  Receive Date: 20120808
  Receipt Date: 20120830
  Transmission Date: 20130627
  Serious: Yes (Other)
  Sender: FDA-Public Use
  Company Number: US-ASTRAZENECA-2012SE53912

PATIENT
  Age: 61 Year
  Sex: Male
  Weight: 88.5 kg

DRUGS (9)
  1. ATENOLOL [Suspect]
     Route: 065
  2. SEROQUEL [Suspect]
     Indication: BIPOLAR DISORDER
     Route: 048
     Dates: start: 201204
  3. SEROQUEL [Suspect]
     Indication: BIPOLAR DISORDER
     Route: 048
  4. SEROQUEL [Suspect]
     Indication: BIPOLAR DISORDER
     Dosage: GENERIC
     Route: 048
     Dates: start: 20111221
  5. ROPINIROLE [Concomitant]
     Indication: RESTLESS LEGS SYNDROME
  6. METFORMIN ER [Concomitant]
  7. LOSARTAN [Concomitant]
  8. LIPITOR [Concomitant]
  9. KLONOPIN [Concomitant]
     Indication: ANXIETY

REACTIONS (11)
  - Disease recurrence [Unknown]
  - Poor quality sleep [Not Recovered/Not Resolved]
  - Agitation [Not Recovered/Not Resolved]
  - Irritability [Not Recovered/Not Resolved]
  - Labile blood pressure [Not Recovered/Not Resolved]
  - Affective disorder [Not Recovered/Not Resolved]
  - Hyperhidrosis [Not Recovered/Not Resolved]
  - Feeling abnormal [Not Recovered/Not Resolved]
  - Lethargy [Not Recovered/Not Resolved]
  - Asthenia [Not Recovered/Not Resolved]
  - Drug ineffective [Unknown]
